FAERS Safety Report 16870177 (Version 1)
Quarter: 2019Q3

REPORT INFORMATION
  Report Type: Spontaneous
  Country: CA (occurrence: CA)
  Receive Date: 20190930
  Receipt Date: 20190930
  Transmission Date: 20191005
  Serious: Yes (Other)
  Sender: FDA-Public Use
  Company Number: CA-PFIZER INC-2019416716

PATIENT
  Age: 23 Year
  Sex: Female

DRUGS (3)
  1. METHOTREXATE SODIUM. [Suspect]
     Active Substance: METHOTREXATE SODIUM
     Indication: CROHN^S DISEASE
     Dosage: UNK, WEEKLY
     Route: 058
     Dates: start: 201511, end: 201601
  2. PREDNISONE. [Suspect]
     Active Substance: PREDNISONE
     Dosage: 50 MG, UNK
  3. PREDNISONE. [Suspect]
     Active Substance: PREDNISONE
     Dosage: 40 MG, UNK

REACTIONS (3)
  - Drug ineffective for unapproved indication [Unknown]
  - Off label use [Unknown]
  - Rectal haemorrhage [Unknown]
